FAERS Safety Report 8947735 (Version 1)
Quarter: 2012Q4

REPORT INFORMATION
  Report Type: Spontaneous
  Country: JP (occurrence: None)
  Receive Date: 20121127
  Receipt Date: 20121127
  Transmission Date: 20130627
  Serious: Yes (Other)
  Sender: FDA-Public Use
  Company Number: DSA_61043_2012

PATIENT
  Age: 48 Year
  Sex: Male

DRUGS (6)
  1. FLUOROURACIL (FLUOROURACIL) [Suspect]
     Indication: SQUAMOUS CELL CARCINOMA
     Dosage: DF
     Dates: start: 200811
  2. PREDNISONE (PREDNISONE) [Concomitant]
     Indication: SQUAMOUS CELL CARCINOMA
     Dosage: DF
     Dates: start: 200811
  3. ETOPOSIDE [Suspect]
     Indication: SQUAMOUS CELL CARCINOMA
     Dosage: DF
     Dates: start: 200811
  4. CISPLATIN [Suspect]
     Dosage: DF
     Dates: start: 200811
  5. PROCARBAZINE [Suspect]
     Indication: SQUAMOUS CELL CARCINOMA
     Dosage: DF
     Dates: start: 200811
  6. HORMONES AND RELATED AGENTS [Concomitant]

REACTIONS (1)
  - Vena cava thrombosis [None]
